FAERS Safety Report 12935857 (Version 2)
Quarter: 2016Q4

REPORT INFORMATION
  Report Type: Spontaneous
  Country: US (occurrence: US)
  Receive Date: 20161114
  Receipt Date: 20161117
  Transmission Date: 20170207
  Serious: Yes (Hospitalization, Other)
  Sender: FDA-Public Use
  Company Number: US-B.I. PHARMACEUTICALS,INC./RIDGEFIELD-2016-BI-075401

PATIENT
  Sex: Female

DRUGS (1)
  1. ATROVENT [Suspect]
     Active Substance: IPRATROPIUM BROMIDE
     Indication: PRODUCT USED FOR UNKNOWN INDICATION
     Dosage: 2-4 INHALATIONS PER DAY
     Route: 055

REACTIONS (7)
  - Cerebrovascular accident [Recovered/Resolved]
  - Fluid retention [Not Recovered/Not Resolved]
  - Secretion discharge [Not Recovered/Not Resolved]
  - Myocardial infarction [Recovered/Resolved]
  - Throat cancer [Recovered/Resolved with Sequelae]
  - Atrioventricular block [Recovered/Resolved]
  - Ischaemia [Not Recovered/Not Resolved]

NARRATIVE: CASE EVENT DATE: 2013
